FAERS Safety Report 7469394-7 (Version None)
Quarter: 2011Q2

REPORT INFORMATION
  Report Type: 
  Country: None (occurrence: None)
  Receive Date: 20110510
  Receipt Date: 20110502
  Transmission Date: 20111010
  Serious: Yes (Hospitalization)
  Sender: FDA-Public Use
  Company Number: FR-PFIZER INC-2011093503

PATIENT
  Age: 40 Year
  Sex: Male

DRUGS (3)
  1. SIROLIMUS [Suspect]
     Dosage: UNK
     Dates: start: 20080411
  2. SIROLIMUS [Suspect]
     Indication: IMMUNOSUPPRESSANT DRUG THERAPY
     Dosage: UNK
     Route: 048
     Dates: start: 20070319, end: 20080116
  3. SIROLIMUS [Suspect]
     Dosage: UNK
     Route: 048
     Dates: start: 20070117, end: 20070416

REACTIONS (1)
  - HERNIA [None]
